FAERS Safety Report 7253488-5 (Version None)
Quarter: 2011Q1

REPORT INFORMATION
  Report Type: 
  Country: None (occurrence: None)
  Receive Date: 20110129
  Receipt Date: 20100318
  Transmission Date: 20110831
  Serious: No
  Sender: FDA-Public Use
  Company Number: US-ABBOTT-10P-163-0629531-00

PATIENT
  Sex: Male
  Weight: 108.96 kg

DRUGS (3)
  1. LOVAZA [Concomitant]
     Indication: PRODUCT USED FOR UNKNOWN INDICATION
  2. LITHIUM [Concomitant]
     Indication: PRODUCT USED FOR UNKNOWN INDICATION
     Dosage: 2-300MG EVERY AM AND PM
  3. HUMIRA [Suspect]
     Indication: PSORIASIS
     Dosage: 80MG DAY 1

REACTIONS (1)
  - INJECTION SITE PAIN [None]
